FAERS Safety Report 21652682 (Version 1)
Quarter: 2022Q4

REPORT INFORMATION
  Report Type: Spontaneous
  Country: US (occurrence: None)
  Receive Date: 20221126
  Receipt Date: 20221126
  Transmission Date: 20230112
  Serious: Yes (Death)
  Sender: FDA-Public Use
  Company Number: None

PATIENT
  Age: 89 Year
  Sex: Male
  Weight: 82.1 kg

DRUGS (19)
  1. ABIRATERONE ACETATE [Suspect]
     Active Substance: ABIRATERONE ACETATE
     Indication: Prostate cancer
     Dosage: FREQUENCY : DAILY;?
     Route: 048
  2. ALLOPURINOL [Concomitant]
  3. AMLODIPINE [Concomitant]
  4. ATORVASTATIN [Concomitant]
  5. FERROUS SULFATE [Concomitant]
  6. FINASTERIDE [Concomitant]
  7. FUROSEMIDE [Concomitant]
  8. MORPHINE SULFATE [Concomitant]
  9. OLMESARTAN MEDOXOMIL [Concomitant]
  10. OXYBUTYNIN [Concomitant]
  11. OXYCODONE [Concomitant]
  12. PANTOPRAZOLE [Concomitant]
  13. POTASSIUM [Concomitant]
  14. PRADAXA [Concomitant]
  15. PREDNISONE [Concomitant]
  16. DICLOFENAC [Concomitant]
  17. TAMSULOSIN [Concomitant]
  18. SENNA [Concomitant]
  19. TYLENOL [Concomitant]

REACTIONS (1)
  - Death [None]
